FAERS Safety Report 21826763 (Version 1)
Quarter: 2023Q1

REPORT INFORMATION
  Report Type: Report from Study
  Country: US (occurrence: US)
  Receive Date: 20230106
  Receipt Date: 20230106
  Transmission Date: 20230417
  Serious: No
  Sender: FDA-Public Use
  Company Number: US-ABBVIE-4217515

PATIENT
  Sex: Female

DRUGS (1)
  1. RINVOQ [Suspect]
     Active Substance: UPADACITINIB
     Indication: Rheumatoid arthritis
     Route: 048
     Dates: start: 20220915, end: 20221013

REACTIONS (7)
  - Rash pustular [Not Recovered/Not Resolved]
  - Cough [Recovered/Resolved]
  - Arthropathy [Not Recovered/Not Resolved]
  - Fungal skin infection [Recovered/Resolved]
  - Skin exfoliation [Recovered/Resolved]
  - Gastric disorder [Recovered/Resolved]
  - Musculoskeletal disorder [Not Recovered/Not Resolved]
